FAERS Safety Report 15396502 (Version 1)
Quarter: 2018Q3

REPORT INFORMATION
  Report Type: Spontaneous
  Country: FR (occurrence: FR)
  Receive Date: 20180918
  Receipt Date: 20180918
  Transmission Date: 20181010
  Serious: Yes (Other)
  Sender: FDA-Public Use
  Company Number: FR-PFIZER INC-2018369735

PATIENT
  Age: 58 Year
  Sex: Male

DRUGS (5)
  1. FLECAINE [Concomitant]
     Active Substance: FLECAINIDE
     Dosage: UNK
  2. VALSARTAN. [Concomitant]
     Active Substance: VALSARTAN
     Dosage: UNK
  3. SECTRAL [Concomitant]
     Active Substance: ACEBUTOLOL HYDROCHLORIDE
     Dosage: UNK
  4. NOCTAMIDE [Suspect]
     Active Substance: LORMETAZEPAM
     Indication: CHEMICAL SUBMISSION
     Dosage: 1 DF, SINGLE
     Route: 048
     Dates: start: 20170617, end: 20170617
  5. XANAX [Suspect]
     Active Substance: ALPRAZOLAM
     Indication: CHEMICAL SUBMISSION
     Dosage: 1 DF, SINGLE
     Route: 048
     Dates: start: 20170617, end: 20170617

REACTIONS (1)
  - Victim of chemical submission [Recovered/Resolved]

NARRATIVE: CASE EVENT DATE: 20170617
